FAERS Safety Report 9745760 (Version 1)
Quarter: 2013Q4

REPORT INFORMATION
  Report Type: Spontaneous
  Country: US (occurrence: US)
  Receive Date: 20131211
  Receipt Date: 20131211
  Transmission Date: 20140711
  Serious: Yes (Death, Other)
  Sender: FDA-Public Use
  Company Number: PHHY2013US141674

PATIENT
  Age: 44 Year
  Sex: Female

DRUGS (8)
  1. VINCRISTINE [Suspect]
     Indication: PLASMABLASTIC LYMPHOMA
  2. DOXORUBICIN [Suspect]
     Indication: PLASMABLASTIC LYMPHOMA
  3. PREDNISONE [Suspect]
     Indication: PLASMABLASTIC LYMPHOMA
  4. IFOSFAMIDE [Suspect]
     Indication: PLASMABLASTIC LYMPHOMA
  5. ETOPOSIDE [Suspect]
     Indication: PLASMABLASTIC LYMPHOMA
  6. CARBOPLATIN [Suspect]
     Indication: PLASMABLASTIC LYMPHOMA
  7. BORTEZOMIB [Suspect]
     Indication: PLASMABLASTIC LYMPHOMA
  8. CYCLOPHOSPHAMIDE [Suspect]
     Indication: PLASMABLASTIC LYMPHOMA

REACTIONS (8)
  - Plasmablastic lymphoma [Fatal]
  - Malignant neoplasm progression [Fatal]
  - Haematotoxicity [Unknown]
  - Nephropathy toxic [Unknown]
  - Neutropenia [Unknown]
  - Diarrhoea [Unknown]
  - Anaemia [Unknown]
  - Drug ineffective [Unknown]
